FAERS Safety Report 15103899 (Version 1)
Quarter: 2018Q3

REPORT INFORMATION
  Report Type: Spontaneous
  Country: CN (occurrence: CN)
  Receive Date: 20180703
  Receipt Date: 20180703
  Transmission Date: 20181010
  Serious: Yes (Other)
  Sender: FDA-Public Use
  Company Number: CN-PFIZER INC-2018266744

PATIENT
  Age: 69 Year
  Sex: Male
  Weight: 45 kg

DRUGS (2)
  1. MEDROL [Suspect]
     Active Substance: METHYLPREDNISOLONE
     Indication: LUNG INFECTION
     Dosage: 12 MG, 2X/DAY
     Route: 048
     Dates: start: 20180419, end: 20180424
  2. FLUIMUCIL [Suspect]
     Active Substance: ACETYLCYSTEINE
     Indication: SPUTUM ABNORMAL
     Dosage: 0.6 G, 2X/DAY
     Route: 048
     Dates: start: 20180419, end: 20180424

REACTIONS (1)
  - Pyrexia [Recovered/Resolved]

NARRATIVE: CASE EVENT DATE: 20180421
